FAERS Safety Report 9373415 (Version 1)
Quarter: 2013Q2

REPORT INFORMATION
  Report Type: Spontaneous
  Country: US (occurrence: US)
  Receive Date: 20130627
  Receipt Date: 20130627
  Transmission Date: 20140414
  Serious: Yes (Other)
  Sender: FDA-Public Use
  Company Number: US-PFIZER INC-2013189142

PATIENT
  Age: 94 Year
  Sex: Female

DRUGS (10)
  1. LIPITOR [Suspect]
     Dosage: 10 MG, UNK
  2. TOVIAZ [Suspect]
     Dosage: UNK
  3. LEVOTHYROXINE [Concomitant]
     Dosage: 0.75 UG, 1X/DAY
  4. CHONDROITIN/GLUCOSAMINE [Concomitant]
     Dosage: 2 DF, 1X/DAY
  5. LASIX [Concomitant]
     Dosage: 20 MG, UNK
  6. CALTRATE [Concomitant]
     Dosage: 2 DF, 1X/DAY
  7. ACIDOPHILUS [Concomitant]
     Dosage: UNK, 1X/DAY
  8. ECHINACEA [Concomitant]
     Dosage: UNK, 1X/DAY
  9. CIPRO [Concomitant]
  10. KEFLEX [Concomitant]
     Dosage: 1000 MG, UNK

REACTIONS (2)
  - Lip and/or oral cavity cancer [Unknown]
  - Arthralgia [Unknown]
